FAERS Safety Report 15115224 (Version 1)
Quarter: 2018Q3

REPORT INFORMATION
  Report Type: Spontaneous
  Country: DE (occurrence: DE)
  Receive Date: 20180706
  Receipt Date: 20180706
  Transmission Date: 20181010
  Serious: Yes (Other)
  Sender: FDA-Public Use
  Company Number: DE-AUROBINDO-AUR-APL-2017-17934

PATIENT
  Age: 69 Year
  Sex: Female

DRUGS (7)
  1. CLOPIDOGREL [Suspect]
     Active Substance: CLOPIDOGREL BISULFATE
     Indication: ANTIPLATELET THERAPY
     Dosage: 600 MILLIGRAM
     Route: 065
  2. HEPARIN [Concomitant]
     Active Substance: HEPARIN SODIUM
     Indication: ACUTE MYOCARDIAL INFARCTION
     Dosage: 5000 INTERNATIONAL UNIT
     Route: 042
  3. ACETYLSALICYLIC ACID [Concomitant]
     Active Substance: ASPIRIN
     Dosage: 200 MILLIGRAM, ONCE A DAY
     Route: 065
  4. PRASUGREL. [Interacting]
     Active Substance: PRASUGREL
     Indication: ANTIPLATELET THERAPY
     Dosage: 60 MILLIGRAM
     Route: 065
  5. PRASUGREL. [Interacting]
     Active Substance: PRASUGREL
     Dosage: 10 MILLIGRAM, ONCE A DAY
     Route: 065
  6. MORPHINE SULFATE. [Interacting]
     Active Substance: MORPHINE SULFATE
     Indication: ACUTE MYOCARDIAL INFARCTION
     Dosage: 5 MILLIGRAM
     Route: 042
  7. ACETYLSALICYLIC ACID [Concomitant]
     Active Substance: ASPIRIN
     Indication: ACUTE MYOCARDIAL INFARCTION
     Dosage: 500 MILLIGRAM
     Route: 042

REACTIONS (3)
  - Drug interaction [Unknown]
  - Drug ineffective [Unknown]
  - Vascular stent thrombosis [Recovered/Resolved]
